FAERS Safety Report 9128299 (Version 1)
Quarter: 2013Q1

REPORT INFORMATION
  Report Type: Spontaneous
  Country: US (occurrence: US)
  Receive Date: 20130228
  Receipt Date: 20130228
  Transmission Date: 20140127
  Serious: No
  Sender: FDA-Public Use
  Company Number: US-ABBOTT-12P-163-0967806-00

PATIENT
  Sex: Male
  Weight: 99.88 kg

DRUGS (6)
  1. ANDROGEL 1.62% [Suspect]
     Indication: BLOOD TESTOSTERONE DECREASED
     Dosage: 2 PUMPS DAILY
     Dates: start: 201206
  2. BETAGAN [Concomitant]
     Indication: PRODUCT USED FOR UNKNOWN INDICATION
  3. XALANTAN [Concomitant]
     Indication: PRODUCT USED FOR UNKNOWN INDICATION
  4. PILOCARPINE [Concomitant]
     Indication: PRODUCT USED FOR UNKNOWN INDICATION
  5. ALPHAGAN [Concomitant]
     Indication: PRODUCT USED FOR UNKNOWN INDICATION
  6. MULTIVITAMIN [Concomitant]
     Indication: PRODUCT USED FOR UNKNOWN INDICATION

REACTIONS (3)
  - Alopecia [Not Recovered/Not Resolved]
  - Loss of libido [Not Recovered/Not Resolved]
  - Testicular disorder [Not Recovered/Not Resolved]
